FAERS Safety Report 9231136 (Version 2)
Quarter: 2013Q4

REPORT INFORMATION
  Report Type: Spontaneous
  Country: DK (occurrence: DK)
  Receive Date: 20130415
  Receipt Date: 20131204
  Transmission Date: 20140711
  Serious: Yes (Other)
  Sender: FDA-Public Use
  Company Number: DK-NOVOPROD-374996

PATIENT
  Age: 55 Year
  Sex: Female

DRUGS (2)
  1. ACTIVELLE [Suspect]
     Indication: MENOPAUSE
     Dates: start: 2001
  2. ACTIVELLE [Suspect]
     Indication: MIGRAINE

REACTIONS (2)
  - Pain in extremity [Not Recovered/Not Resolved]
  - Deep vein thrombosis [Not Recovered/Not Resolved]
